FAERS Safety Report 10463136 (Version 2)
Quarter: 2015Q3

REPORT INFORMATION
  Report Type: Spontaneous
  Country: US (occurrence: US)
  Receive Date: 20140919
  Receipt Date: 20150721
  Transmission Date: 20151125
  Serious: Yes (Hospitalization)
  Sender: FDA-Public Use
  Company Number: US-AMGEN-USASP2014070757

PATIENT
  Age: 76 Year
  Sex: Female

DRUGS (4)
  1. WELCHOL [Concomitant]
     Active Substance: COLESEVELAM HYDROCHLORIDE
  2. SINGULAIR [Concomitant]
     Active Substance: MONTELUKAST SODIUM
  3. OXYCODONE [Concomitant]
     Active Substance: OXYCODONE
     Dosage: 5 MG, BID
  4. NPLATE [Suspect]
     Active Substance: ROMIPLOSTIM
     Indication: IMMUNE THROMBOCYTOPENIC PURPURA
     Dosage: UNK UNK, QD
     Route: 065
     Dates: start: 201405

REACTIONS (17)
  - Asthma [Unknown]
  - Hypertension [Unknown]
  - Hyperventilation [Unknown]
  - Back pain [Unknown]
  - Neck pain [Unknown]
  - Dyspnoea [Unknown]
  - Abdominal pain [Unknown]
  - Body temperature fluctuation [Unknown]
  - Hyperhidrosis [Unknown]
  - Sigmoidectomy [Unknown]
  - Chest pain [Unknown]
  - Tremor [Unknown]
  - Malaise [Unknown]
  - Musculoskeletal pain [Unknown]
  - Pruritus [Recovered/Resolved]
  - Diverticulitis [Unknown]
  - Irritable bowel syndrome [Unknown]

NARRATIVE: CASE EVENT DATE: 20140531
